FAERS Safety Report 11611034 (Version 1)
Quarter: 2015Q4

REPORT INFORMATION
  Report Type: Spontaneous
  Country: US (occurrence: None)
  Receive Date: 20151007
  Receipt Date: 20151007
  Transmission Date: 20160304
  Serious: Yes (Other)
  Sender: FDA-Public Use
  Company Number: None

PATIENT

DRUGS (1)
  1. CALCIUM GLUCONATE 1G/10ML INJECTION-VIALS [Suspect]
     Active Substance: CALCIUM GLUCONATE

REACTIONS (3)
  - Product packaging issue [None]
  - Product label confusion [None]
  - Circumstance or information capable of leading to medication error [None]

NARRATIVE: CASE EVENT DATE: 20150921
